FAERS Safety Report 8238264-9 (Version None)
Quarter: 2012Q1

REPORT INFORMATION
  Report Type: 
  Country: None (occurrence: None)
  Receive Date: 20120327
  Receipt Date: 20120323
  Transmission Date: 20120608
  Serious: Yes (Other)
  Sender: FDA-Public Use
  Company Number: US-JNJFOC-20120304522

PATIENT
  Age: 83 Year
  Sex: Female

DRUGS (6)
  1. AZELASTINE HCL [Concomitant]
     Indication: MULTIPLE ALLERGIES
     Dosage: FOR 12 TO 13 YEARS
     Route: 065
  2. BENADRYL [Suspect]
     Route: 048
  3. FLUTICASONE PROPIONATE [Concomitant]
     Indication: MULTIPLE ALLERGIES
     Dosage: FOR 12 TO 13 YEARS
     Route: 065
  4. CLARITIN [Concomitant]
     Indication: MULTIPLE ALLERGIES
     Dosage: HALF IN THE AM, OFF AND ON FOR YEARS
     Route: 065
  5. BENADRYL [Suspect]
     Indication: MULTIPLE ALLERGIES
     Dosage: FOR ABOUT SIX MONTHS
     Route: 048
  6. NASACORT [Concomitant]
     Indication: MULTIPLE ALLERGIES
     Dosage: FOR 12 TO 13 YEARS
     Route: 065

REACTIONS (3)
  - DRUG INEFFECTIVE [None]
  - SLEEP DISORDER [None]
  - DEPENDENCE [None]
